FAERS Safety Report 9143462 (Version 1)
Quarter: 2013Q1

REPORT INFORMATION
  Report Type: Spontaneous
  Country: US (occurrence: US)
  Receive Date: 20130306
  Receipt Date: 20130306
  Transmission Date: 20140127
  Serious: No
  Sender: FDA-Public Use
  Company Number: US-PFIZER INC-2013072403

PATIENT
  Sex: Male

DRUGS (2)
  1. AVINZA [Suspect]
     Dosage: 30 MG, DAILY
  2. PERCOCET [Suspect]
     Indication: PAIN
     Dosage: 6 PERCOCET A DAY

REACTIONS (1)
  - Depressed mood [Recovered/Resolved]
